FAERS Safety Report 6028015-0 (Version None)
Quarter: 2008Q4

REPORT INFORMATION
  Report Type: 
  Country: None (occurrence: None)
  Receive Date: 20081223
  Receipt Date: 20081210
  Transmission Date: 20090506
  Serious: Yes (Other)
  Sender: FDA-Public Use
  Company Number: CHNY2008FR04479

PATIENT
  Age: 57 Year
  Sex: Male

DRUGS (5)
  1. SCOPOLAMINE [Suspect]
     Indication: SALIVARY HYPERSECRETION
     Dosage: 1 MG, Q72H, TRANSDERMAL
     Route: 062
     Dates: start: 20070101, end: 20081210
  2. DEPAKENE [Concomitant]
  3. FLUPHENAZINE HCL [Concomitant]
  4. HALDOL (HALOPERIDOL DECANOATE) [Concomitant]
  5. DIHYDROERGOTAMINE MESYLATE [Concomitant]

REACTIONS (2)
  - SINUS BRADYCARDIA [None]
  - TACHYCARDIA [None]
